FAERS Safety Report 23160705 (Version 1)
Quarter: 2023Q4

REPORT INFORMATION
  Report Type: Spontaneous
  Country: US (occurrence: None)
  Receive Date: 20231108
  Receipt Date: 20231108
  Transmission Date: 20240110
  Serious: Yes (Death)
  Sender: FDA-Public Use
  Company Number: None

PATIENT
  Sex: Female

DRUGS (1)
  1. STIVARGA [Suspect]
     Active Substance: REGORAFENIB
     Indication: Malignant connective tissue neoplasm
     Dosage: 160MG ONCE DAILY BY MOUTH?
     Route: 048
     Dates: start: 202308

REACTIONS (1)
  - Malignant connective tissue neoplasm [None]
